FAERS Safety Report 13667591 (Version 1)
Quarter: 2017Q2

REPORT INFORMATION
  Report Type: Spontaneous
  Country: US (occurrence: US)
  Receive Date: 20170620
  Receipt Date: 20170620
  Transmission Date: 20170830
  Serious: No
  Sender: FDA-Public Use
  Company Number: US-B.I. PHARMACEUTICALS,INC./RIDGEFIELD-2017-BI-033453

PATIENT
  Sex: Female

DRUGS (4)
  1. HABITROL [Concomitant]
     Active Substance: NICOTINE
     Indication: SMOKING CESSATION THERAPY
     Dosage: FOR ONE WEEK
     Route: 062
  2. SPIRIVA [Suspect]
     Active Substance: TIOTROPIUM BROMIDE MONOHYDRATE
     Indication: DRUG THERAPY
     Route: 065
     Dates: start: 20170603
  3. HABITROL [Concomitant]
     Active Substance: NICOTINE
     Dosage: FOR ONE WEEK
     Route: 062
  4. ZYRTEC [Concomitant]
     Active Substance: CETIRIZINE HYDROCHLORIDE
     Indication: DRUG THERAPY
     Route: 065
     Dates: start: 20170603

REACTIONS (1)
  - Weight decreased [Unknown]
